FAERS Safety Report 16362267 (Version 1)
Quarter: 2019Q2

REPORT INFORMATION
  Report Type: Report from Study
  Country: US (occurrence: US)
  Receive Date: 20190528
  Receipt Date: 20190528
  Transmission Date: 20190711
  Serious: Yes (Hospitalization, Other)
  Sender: FDA-Public Use
  Company Number: US-MYLANLABS-2019M1049376

PATIENT
  Sex: Female
  Weight: 113.3 kg

DRUGS (1)
  1. GLATIRAMER ACETATE INJECTION [Suspect]
     Active Substance: GLATIRAMER ACETATE
     Indication: RELAPSING-REMITTING MULTIPLE SCLEROSIS
     Dosage: 40 MILLIGRAM, EVERY 3 DAYS

REACTIONS (7)
  - Hypoaesthesia [Not Recovered/Not Resolved]
  - Gait inability [Unknown]
  - Pruritus [Not Recovered/Not Resolved]
  - Injection site nodule [Unknown]
  - Arthralgia [Not Recovered/Not Resolved]
  - Drug ineffective [Not Recovered/Not Resolved]
  - Injection site pain [Unknown]
